FAERS Safety Report 12527582 (Version 2)
Quarter: 2016Q3

REPORT INFORMATION
  Report Type: Report from Study
  Country: US (occurrence: US)
  Receive Date: 20160705
  Receipt Date: 20160901
  Transmission Date: 20161109
  Serious: Yes (Hospitalization)
  Sender: FDA-Public Use
  Company Number: US-ROCHE-1787723

PATIENT
  Age: 49 Year
  Sex: Male

DRUGS (4)
  1. VEMURAFENIB [Suspect]
     Active Substance: VEMURAFENIB
     Route: 048
     Dates: start: 20160624
  2. VEMURAFENIB [Suspect]
     Active Substance: VEMURAFENIB
     Dosage: C2D1
     Route: 048
     Dates: start: 20160627, end: 20160628
  3. VEMURAFENIB [Suspect]
     Active Substance: VEMURAFENIB
     Route: 048
     Dates: start: 20160621
  4. VEMURAFENIB [Suspect]
     Active Substance: VEMURAFENIB
     Indication: HAIRY CELL LEUKAEMIA
     Dosage: C1D1?DATE OF LAST DOSE PRIOR TO SAE: 28/JUN/2016
     Route: 048
     Dates: start: 20160531

REACTIONS (2)
  - Food poisoning [Recovered/Resolved]
  - Febrile neutropenia [Recovered/Resolved]

NARRATIVE: CASE EVENT DATE: 20160628
